FAERS Safety Report 6963549-3 (Version None)
Quarter: 2010Q3

REPORT INFORMATION
  Report Type: 
  Country: None (occurrence: None)
  Receive Date: 20100830
  Receipt Date: 20100817
  Transmission Date: 20110219
  Serious: Yes (Other)
  Sender: FDA-Public Use
  Company Number: B0671356A

PATIENT

DRUGS (8)
  1. ETOPOSIDE [Suspect]
     Indication: NON-HODGKIN'S LYMPHOMA
     Dosage: 200 MG/PER DAY
  2. BUSULFAN [Suspect]
     Indication: NON-HODGKIN'S LYMPHOMA
     Dosage: 8 MG/KG/ FOUR TIMES PER DAY / INTRAVENOUS
     Route: 042
  3. CYCLOPHOSPHAMIDE [Suspect]
     Dosage: 50 MG/KG / PER DAY
  4. CIPROFLOXACIN [Concomitant]
  5. FLUCONAZOLE [Concomitant]
  6. ACYCLOVIR [Concomitant]
  7. PHENYTOIN [Concomitant]
  8. GRANULOCYTE COL. STIM FACT [Concomitant]

REACTIONS (2)
  - DRUG TOXICITY [None]
  - VENOOCCLUSIVE DISEASE [None]
